FAERS Safety Report 5452391-0 (Version None)
Quarter: 2007Q3

REPORT INFORMATION
  Report Type: 
  Country: None (occurrence: None)
  Receive Date: 20070914
  Receipt Date: 20070911
  Transmission Date: 20080115
  Serious: Yes (Death)
  Sender: FDA-Public Use
  Company Number: FR-BRISTOL-MYERS SQUIBB COMPANY-13744420

PATIENT
  Age: 66 Year
  Sex: Male

DRUGS (2)
  1. LYSODREN [Suspect]
     Indication: ADRENAL CARCINOMA
     Route: 048
     Dates: start: 20060501, end: 20060901
  2. HYDROCORTISONE [Concomitant]
     Route: 048
     Dates: start: 20060501, end: 20060901

REACTIONS (1)
  - SUDDEN DEATH [None]
